FAERS Safety Report 5318182-6 (Version None)
Quarter: 2007Q2

REPORT INFORMATION
  Report Type: 
  Country: None (occurrence: None)
  Receive Date: 20070507
  Receipt Date: 20070425
  Transmission Date: 20071010
  Serious: Yes (Other)
  Sender: FDA-Public Use
  Company Number: IN-PFIZER INC-2007011564

PATIENT
  Age: 74 Year
  Sex: Female
  Weight: 55 kg

DRUGS (3)
  1. MINIPRESS XL [Suspect]
     Indication: HYPERTENSION
     Route: 048
  2. AMLOGARD [Suspect]
     Indication: HYPERTENSION
     Route: 048
  3. VASOPRESSIN AND ANALOGUES [Concomitant]
     Indication: DIABETES INSIPIDUS
     Route: 055

REACTIONS (3)
  - BLOOD PRESSURE INADEQUATELY CONTROLLED [None]
  - BLOOD PRESSURE INCREASED [None]
  - OEDEMA PERIPHERAL [None]
